FAERS Safety Report 5173729-8 (Version None)
Quarter: 2006Q4

REPORT INFORMATION
  Report Type: 
  Country: None (occurrence: None)
  Receive Date: 20061214
  Receipt Date: 20061110
  Transmission Date: 20070319
  Serious: No
  Sender: FDA-Public Use
  Company Number: JP-ELI_LILLY_AND_COMPANY-JP200611002405

PATIENT
  Age: 69 Year
  Sex: Female
  Weight: 50.7 kg

DRUGS (6)
  1. EVISTA [Suspect]
     Indication: OSTEOPOROSIS POSTMENOPAUSAL
     Dosage: 60 MG, DAILY (1/D)
     Route: 048
     Dates: start: 20051109, end: 20051130
  2. ONE-ALPHA [Concomitant]
     Indication: OSTEOPOROSIS POSTMENOPAUSAL
     Dosage: 1 UG, UNK
     Route: 048
     Dates: start: 20051109, end: 20051213
  3. OLMETEC                                 /GFR/ [Concomitant]
     Indication: HYPERTENSION
     Dosage: 10 MG, DAILY (1/D)
     Route: 048
  4. NATRIX [Concomitant]
     Indication: HYPERTENSION
     Dosage: 2 MG, DAILY (1/D)
     Route: 048
  5. ISOSORBIDE MONONITRATE [Concomitant]
     Indication: ANGINA PECTORIS
     Dosage: 20 MG, 2/D
     Route: 048
  6. NITROPEN [Concomitant]
     Indication: ANGINA PECTORIS
     Dosage: 0.3 MG, AS NEEDED
     Route: 060

REACTIONS (1)
  - ANGINA PECTORIS [None]
